FAERS Safety Report 17967701 (Version 3)
Quarter: 2024Q2

REPORT INFORMATION
  Report Type: Spontaneous
  Country: US (occurrence: US)
  Receive Date: 20200701
  Receipt Date: 20240514
  Transmission Date: 20240716
  Serious: Yes (Death)
  Sender: FDA-Public Use
  Company Number: US-PFIZER INC-2020252027

PATIENT
  Age: 72 Year
  Sex: Male
  Weight: 62.6 kg

DRUGS (5)
  1. XELJANZ [Suspect]
     Active Substance: TOFACITINIB CITRATE
     Indication: Rheumatoid arthritis
     Dosage: 5 MG, 2X/DAY (6AM WITH FOOD; ANOTHER 6PM USUALLY WITH FOOD)
     Route: 048
     Dates: start: 20200301
  2. CENTRUM SILVER [ASCORBIC ACID;CALCIUM;MINERALS NOS;RETINOL;TOCOPHERYL [Concomitant]
     Indication: Vitamin supplementation
     Dosage: UNK, DAILY
  3. CHOLECALCIFEROL [Concomitant]
     Active Substance: CHOLECALCIFEROL
     Dosage: UNK
  4. VITAMIN E [Concomitant]
     Active Substance: .ALPHA.-TOCOPHEROL
     Dosage: UNK
  5. VITAMIN B3 [Concomitant]
     Active Substance: NIACIN
     Dosage: UNK

REACTIONS (6)
  - Death [Fatal]
  - Weight decreased [Unknown]
  - Lung disorder [Unknown]
  - Rheumatoid lung [Unknown]
  - Condition aggravated [Unknown]
  - Brain fog [Unknown]

NARRATIVE: CASE EVENT DATE: 20240401
